FAERS Safety Report 20659889 (Version 1)
Quarter: 2022Q1

REPORT INFORMATION
  Report Type: Spontaneous
  Country: US (occurrence: US)
  Receive Date: 20220331
  Receipt Date: 20220331
  Transmission Date: 20220423
  Serious: No
  Sender: FDA-Public Use
  Company Number: US-MYLANLABS-2021M1033613

PATIENT
  Sex: Female
  Weight: 125 kg

DRUGS (6)
  1. SEMGLEE [Suspect]
     Active Substance: INSULIN GLARGINE
     Dosage: 100 INTERNATIONAL UNIT
     Route: 058
  2. SEMGLEE [Suspect]
     Active Substance: INSULIN GLARGINE
     Dosage: 100 INTERNATIONAL UNIT
     Route: 058
  3. SEMGLEE [Suspect]
     Active Substance: INSULIN GLARGINE
     Dosage: 40 INTERNATIONAL UNIT, QD
     Route: 058
  4. AMLODIPINE [Concomitant]
     Active Substance: AMLODIPINE BESYLATE
     Indication: Hypertension
     Dosage: UNK
  5. LISINOPRIL [Concomitant]
     Active Substance: LISINOPRIL
     Indication: Blood cholesterol increased
     Dosage: 20 MG
  6. METFORMIN [Concomitant]
     Active Substance: METFORMIN HYDROCHLORIDE
     Indication: Type 2 diabetes mellitus
     Dosage: MORNING/EVENING

REACTIONS (5)
  - Device breakage [Unknown]
  - Device issue [Unknown]
  - Product quality issue [Unknown]
  - Device defective [Unknown]
  - Incorrect dose administered [Unknown]

NARRATIVE: CASE EVENT DATE: 20210101
